FAERS Safety Report 13670857 (Version 1)
Quarter: 2017Q2

REPORT INFORMATION
  Report Type: Spontaneous
  Country: US (occurrence: US)
  Receive Date: 20170620
  Receipt Date: 20170620
  Transmission Date: 20170830
  Serious: Yes (Hospitalization)
  Sender: FDA-Public Use
  Company Number: US-ROCHE-720910

PATIENT
  Sex: Female

DRUGS (8)
  1. XELODA [Suspect]
     Active Substance: CAPECITABINE
     Route: 065
  2. XELODA [Suspect]
     Active Substance: CAPECITABINE
     Route: 065
     Dates: start: 20100709, end: 20100713
  3. XELODA [Suspect]
     Active Substance: CAPECITABINE
     Indication: BREAST CANCER RECURRENT
     Route: 065
     Dates: start: 20100701, end: 20100702
  4. TYKERB [Suspect]
     Active Substance: LAPATINIB DITOSYLATE
     Route: 065
     Dates: start: 20100719, end: 20100723
  5. TYKERB [Suspect]
     Active Substance: LAPATINIB DITOSYLATE
     Route: 065
  6. TYKERB [Suspect]
     Active Substance: LAPATINIB DITOSYLATE
     Route: 065
     Dates: start: 20100816, end: 20100831
  7. TYKERB [Suspect]
     Active Substance: LAPATINIB DITOSYLATE
     Indication: BREAST CANCER RECURRENT
     Route: 065
     Dates: start: 20100701, end: 20100702
  8. TYKERB [Suspect]
     Active Substance: LAPATINIB DITOSYLATE
     Route: 065
     Dates: start: 20100709, end: 20100713

REACTIONS (15)
  - Skin fissures [Recovering/Resolving]
  - Gait disturbance [Recovering/Resolving]
  - Blood pressure increased [Unknown]
  - Erythema [Recovering/Resolving]
  - Dry eye [Not Recovered/Not Resolved]
  - Arthralgia [Recovering/Resolving]
  - Fatigue [Unknown]
  - Chest pain [Recovering/Resolving]
  - Pain in extremity [Recovering/Resolving]
  - Insomnia [Unknown]
  - Rash erythematous [Recovering/Resolving]
  - Gastrooesophageal reflux disease [Not Recovered/Not Resolved]
  - Chest pain [Unknown]
  - Bone pain [Unknown]
  - Drug intolerance [Unknown]

NARRATIVE: CASE EVENT DATE: 20100702
